FAERS Safety Report 25515653 (Version 1)
Quarter: 2025Q3

REPORT INFORMATION
  Report Type: Spontaneous
  Country: CN (occurrence: CN)
  Receive Date: 20250704
  Receipt Date: 20250704
  Transmission Date: 20251021
  Serious: Yes (Life-Threatening, Other)
  Sender: MSN LABORATORIES PRIVATE LIMITED
  Company Number: CN-MLMSERVICE-20250612-PI537679-00230-2

PATIENT

DRUGS (2)
  1. MOXIFLOXACIN [Suspect]
     Active Substance: MOXIFLOXACIN
     Indication: Product used for unknown indication
     Route: 065
  2. DROTAVERINE [Suspect]
     Active Substance: DROTAVERINE
     Indication: Product used for unknown indication
     Route: 065

REACTIONS (4)
  - Drug reaction with eosinophilia and systemic symptoms [Recovered/Resolved]
  - Albuminuria [Recovered/Resolved]
  - Dyspnoea [Recovered/Resolved]
  - Transaminases increased [Recovered/Resolved]
